FAERS Safety Report 13307269 (Version 1)
Quarter: 2017Q1

REPORT INFORMATION
  Report Type: Spontaneous
  Country: US (occurrence: US)
  Receive Date: 20170308
  Receipt Date: 20170308
  Transmission Date: 20170428
  Serious: Yes (Other)
  Sender: FDA-Public Use
  Company Number: US-DSJP-DSU-2017-107227

PATIENT

DRUGS (1)
  1. EVOXAC [Suspect]
     Active Substance: CEVIMELINE HYDROCHLORIDE
     Indication: SALIVARY GLAND DISORDER
     Dosage: 30 MG, BID
     Route: 048
     Dates: end: 201702

REACTIONS (2)
  - Eye prosthesis insertion [Unknown]
  - Malaise [Unknown]

NARRATIVE: CASE EVENT DATE: 201702
